FAERS Safety Report 19446637 (Version 2)
Quarter: 2021Q3

REPORT INFORMATION
  Report Type: Report from Study
  Country: JP (occurrence: JP)
  Receive Date: 20210622
  Receipt Date: 20210920
  Transmission Date: 20211014
  Serious: Yes (Other)
  Sender: FDA-Public Use
  Company Number: JP-RECORDATI RARE DISEASE INC.-2021002255

PATIENT
  Age: 1 Month
  Sex: Male
  Weight: 1.17 kg

DRUGS (11)
  1. CALCICOL [Concomitant]
     Active Substance: CALCIUM GLUCONATE
     Indication: PROPHYLAXIS
  2. CALCICOL [Concomitant]
     Active Substance: CALCIUM GLUCONATE
     Indication: HYPOKALAEMIA
     Dosage: UNK UNK, UNK
     Route: 042
     Dates: start: 20210214, end: 20210214
  3. PANVITAN M [Concomitant]
     Indication: RICKETS
     Dosage: UNK UNK, UNK
     Route: 065
     Dates: start: 20210128, end: 20210217
  4. NEOPROFEN [Suspect]
     Active Substance: IBUPROFEN LYSINE
     Indication: PATENT DUCTUS ARTERIOSUS
     Dosage: 15 MILLIGRAM, QD
     Route: 042
     Dates: start: 20210212, end: 20210212
  5. PANVITAN M [Concomitant]
     Indication: PROPHYLAXIS
  6. RESPIA [Concomitant]
     Active Substance: CAFFEINE
     Indication: INFANTILE APNOEA
     Dosage: UNK UNK, UNK
     Route: 065
     Dates: start: 20210129, end: 20210217
  7. NEOPROFEN [Suspect]
     Active Substance: IBUPROFEN LYSINE
     Dosage: 8 MILLIGRAM, QD
     Route: 042
     Dates: start: 20210213, end: 20210213
  8. NEOPROFEN [Suspect]
     Active Substance: IBUPROFEN LYSINE
     Dosage: 8 MILLIGRAM, QD
     Route: 042
     Dates: start: 20210214, end: 20210214
  9. PULMICORT TURBUHALER [Concomitant]
     Active Substance: BUDESONIDE
     Indication: BRONCHOPULMONARY DYSPLASIA
     Dosage: UNK UNK, UNK
     Route: 065
     Dates: start: 20210123, end: 20210217
  10. POTASSIUM ASPARTATE [Concomitant]
     Active Substance: POTASSIUM ASPARTATE
     Indication: HYPOKALAEMIA
     Dosage: UNK UNK, UNK
     Route: 042
     Dates: start: 20210212, end: 20210224
  11. POTASSIUM ASPARTATE [Concomitant]
     Active Substance: POTASSIUM ASPARTATE
     Indication: PROPHYLAXIS

REACTIONS (2)
  - Hypokalaemia [Recovering/Resolving]
  - Neonatal respiratory distress syndrome [Recovering/Resolving]

NARRATIVE: CASE EVENT DATE: 20210218
